FAERS Safety Report 8150325-1 (Version None)
Quarter: 2012Q1

REPORT INFORMATION
  Report Type: 
  Country: None (occurrence: None)
  Receive Date: 20120220
  Receipt Date: 20120213
  Transmission Date: 20120608
  Serious: Yes (Other)
  Sender: FDA-Public Use
  Company Number: US-BAYER-2011-018135

PATIENT
  Sex: Female
  Weight: 74 kg

DRUGS (3)
  1. MIRENA [Suspect]
     Indication: CONTRACEPTION
     Dosage: 20 ?G, UNK
     Dates: start: 20101230, end: 20110223
  2. VICODIN [Concomitant]
  3. FLEXERIL [Concomitant]

REACTIONS (4)
  - PELVIC PAIN [None]
  - BLIGHTED OVUM [None]
  - DYSFUNCTIONAL UTERINE BLEEDING [None]
  - PREGNANCY WITH CONTRACEPTIVE DEVICE [None]
